FAERS Safety Report 4951529-9 (Version None)
Quarter: 2006Q1

REPORT INFORMATION
  Report Type: 
  Country: None (occurrence: None)
  Receive Date: 20060317
  Receipt Date: 20060228
  Transmission Date: 20060701
  Serious: Yes (Hospitalization)
  Sender: FDA-Public Use
  Company Number: 6021091

PATIENT
  Age: 82 Year
  Sex: Female

DRUGS (7)
  1. ATENOLOL [Suspect]
     Indication: ESSENTIAL HYPERTENSION
     Dosage: 50 MG, 1 D; ORAL
     Route: 048
  2. ASPIRIN [Concomitant]
  3. CLOPIDOGREL [Concomitant]
  4. CANDESARTAN [Concomitant]
  5. THYROXINE [Concomitant]
  6. MELOXICAM [Concomitant]
  7. TEMAZEPAM [Concomitant]

REACTIONS (5)
  - BRADYCARDIA [None]
  - CHEST PAIN [None]
  - DYSPNOEA [None]
  - RENAL IMPAIRMENT [None]
  - SYNCOPE [None]
